FAERS Safety Report 25376872 (Version 1)
Quarter: 2025Q2

REPORT INFORMATION
  Report Type: Spontaneous
  Country: DE (occurrence: DE)
  Receive Date: 20250530
  Receipt Date: 20250530
  Transmission Date: 20250716
  Serious: Yes (Death, Life-Threatening)
  Sender: INDOCO REMEDIES LIMITED
  Company Number: DE-INDOCO-IND-2025-DE-SPO-00594

PATIENT

DRUGS (1)
  1. FEBUXOSTAT [Suspect]
     Active Substance: FEBUXOSTAT
     Indication: Gout
     Route: 065

REACTIONS (2)
  - Cardiovascular insufficiency [Unknown]
  - Drug reaction with eosinophilia and systemic symptoms [Fatal]
